FAERS Safety Report 4779097-5 (Version None)
Quarter: 2005Q3

REPORT INFORMATION
  Report Type: 
  Country: None (occurrence: None)
  Receive Date: 20050923
  Receipt Date: 20050907
  Transmission Date: 20060218
  Serious: Yes (Hospitalization)
  Sender: FDA-Public Use
  Company Number: URSO-2005-029

PATIENT
  Age: 60 Year
  Sex: Female

DRUGS (8)
  1. URSO TABLETS 50 MG (URSODESOXYCHOLIC ACID) [Suspect]
     Indication: BILIARY CIRRHOSIS PRIMARY
     Dosage: 600 MG, PO
     Route: 048
     Dates: start: 20020514
  2. LAC B (BIFIDOBACTERIUM) [Concomitant]
  3. THIATON (TIQUIZIUM BROMIDE) [Concomitant]
  4. GASMOTIN (MOSAPRIDE CITRATE) [Concomitant]
  5. SUCRALFATE [Concomitant]
  6. PARIET (SODIUM RABEPRAZOLE) [Concomitant]
  7. ALLEGRA [Concomitant]
  8. GASTROM (ECABET SODIUM) [Concomitant]

REACTIONS (4)
  - DIARRHOEA [None]
  - HEPATITIS ACUTE [None]
  - PLATELET COUNT DECREASED [None]
  - WHITE BLOOD CELL COUNT DECREASED [None]
